FAERS Safety Report 6781371-8 (Version None)
Quarter: 2010Q2

REPORT INFORMATION
  Report Type: 
  Country: None (occurrence: None)
  Receive Date: 20100621
  Receipt Date: 20100615
  Transmission Date: 20101027
  Serious: Yes (Hospitalization, Other)
  Sender: FDA-Public Use
  Company Number: US-B.I. PHARMACEUTICALS,INC./RIDGEFIELD-2010-BP-06871PF

PATIENT
  Sex: Male

DRUGS (4)
  1. SPIRIVA [Suspect]
  2. LIPITOR [Suspect]
     Dates: start: 20080101
  3. ACCUPRIL [Suspect]
  4. GLUCOTROL XL [Suspect]

REACTIONS (1)
  - UNEVALUABLE EVENT [None]
